FAERS Safety Report 22157840 (Version 1)
Quarter: 2023Q1

REPORT INFORMATION
  Report Type: Spontaneous
  Country: US (occurrence: US)
  Receive Date: 20230330
  Receipt Date: 20230330
  Transmission Date: 20230417
  Serious: No
  Sender: FDA-Public Use
  Company Number: US-PFIZER INC-PV202300057852

PATIENT
  Age: 55 Year
  Sex: Female

DRUGS (9)
  1. EUCRISA [Suspect]
     Active Substance: CRISABOROLE
     Indication: Dermatitis atopic
     Dosage: UNK
     Route: 061
  2. TACROLIMUS [Suspect]
     Active Substance: TACROLIMUS
     Indication: Dermatitis atopic
     Dosage: UNK
     Route: 061
  3. CLOBETASOL [Suspect]
     Active Substance: CLOBETASOL
     Indication: Dermatitis atopic
     Dosage: UNK
     Route: 061
  4. BETAMETHASONE [Suspect]
     Active Substance: BETAMETHASONE
     Indication: Dermatitis atopic
     Dosage: UNK
     Route: 061
  5. TOPICORT [Suspect]
     Active Substance: DESOXIMETASONE
     Indication: Dermatitis atopic
     Dosage: UNK
     Route: 061
  6. TOPICORT [Suspect]
     Active Substance: DESOXIMETASONE
     Indication: Dermatitis atopic
     Dosage: SPRAY
  7. TRIAMCINOLONE ACETONIDE [Suspect]
     Active Substance: TRIAMCINOLONE ACETONIDE
     Indication: Dermatitis atopic
     Dosage: UNK
     Route: 061
  8. SILVER SULFATE [Suspect]
     Active Substance: SILVER SULFATE
     Indication: Dermatitis atopic
     Dosage: UNK
     Route: 061
  9. CANNABIS SATIVA SUBSP. INDICA TOP [Suspect]
     Active Substance: CANNABIS SATIVA SUBSP. INDICA TOP
     Indication: Dermatitis atopic
     Dosage: UNK
     Route: 061

REACTIONS (1)
  - Drug ineffective [Unknown]
